FAERS Safety Report 11979082 (Version 1)
Quarter: 2016Q1

REPORT INFORMATION
  Report Type: Spontaneous
  Country: US (occurrence: US)
  Receive Date: 20160129
  Receipt Date: 20160129
  Transmission Date: 20160526
  Serious: Yes (Other)
  Sender: FDA-Public Use
  Company Number: US-SMITH AND NEPHEW, INC-2016SMT00051

PATIENT
  Age: 82 Year
  Sex: Female
  Weight: 56.69 kg

DRUGS (4)
  1. CALCIUM [Concomitant]
     Active Substance: CALCIUM
     Dosage: UNK, 1X/DAY
  2. 3 KINDS OF UNSPECIFIED PAIN MEDICATIONS [Concomitant]
     Dosage: UNK, AS NEEDED
  3. MULTIVITAMINS [Concomitant]
     Active Substance: VITAMINS
     Dosage: UNK
  4. REGRANEX [Suspect]
     Active Substance: BECAPLERMIN
     Indication: SKIN ULCER
     Dosage: UNK UNK, 2X/DAY
     Route: 061
     Dates: start: 20151219, end: 20160111

REACTIONS (3)
  - Off label use [Unknown]
  - Toe amputation [Recovered/Resolved with Sequelae]
  - Incorrect drug administration duration [Unknown]

NARRATIVE: CASE EVENT DATE: 20151219
